FAERS Safety Report 20334223 (Version 3)
Quarter: 2022Q1

REPORT INFORMATION
  Report Type: Spontaneous
  Country: US (occurrence: None)
  Receive Date: 20220113
  Receipt Date: 20220217
  Transmission Date: 20220423
  Serious: Yes (Other)
  Sender: FDA-Public Use
  Company Number: 2021A890023

PATIENT
  Age: 70 Year
  Sex: Male
  Weight: 69.2 kg

DRUGS (2)
  1. IMFINZI [Suspect]
     Active Substance: DURVALUMAB
     Indication: Non-small cell lung cancer stage III
     Dosage: 773
     Route: 042
     Dates: start: 20211025, end: 20211122
  2. PREDNISONE [Concomitant]
     Active Substance: PREDNISONE
     Dosage: 100.0MG UNKNOWN
     Route: 065
     Dates: start: 20220103

REACTIONS (9)
  - Pneumonitis [Recovering/Resolving]
  - Muscular weakness [Unknown]
  - Ill-defined disorder [Unknown]
  - Speech disorder [Unknown]
  - Dyspnoea [Recovering/Resolving]
  - Immune system disorder [Unknown]
  - Fatigue [Unknown]
  - Asthenia [Recovering/Resolving]
  - Hepatic enzyme increased [Unknown]

NARRATIVE: CASE EVENT DATE: 20211130
